FAERS Safety Report 13652238 (Version 2)
Quarter: 2017Q3

REPORT INFORMATION
  Report Type: Spontaneous
  Country: US (occurrence: US)
  Receive Date: 20170614
  Receipt Date: 20170724
  Transmission Date: 20171127
  Serious: No
  Sender: FDA-Public Use
  Company Number: US-LEXICON PHARMACEUTICALS, INC-17-1606-00268

PATIENT
  Age: 67 Year
  Sex: Male
  Weight: 140 kg

DRUGS (14)
  1. ATORVASTATIN [Concomitant]
     Active Substance: ATORVASTATIN
  2. HYDRALAZINE [Concomitant]
     Active Substance: HYDRALAZINE HYDROCHLORIDE
  3. CLONIDINE. [Concomitant]
     Active Substance: CLONIDINE
  4. TELOTRISTAT ETHYL [Suspect]
     Active Substance: TELOTRISTAT ETHYL
     Route: 048
     Dates: start: 2017, end: 2017
  5. FERROUS SULFATE. [Concomitant]
     Active Substance: FERROUS SULFATE
  6. ONDANSETRON [Concomitant]
     Active Substance: ONDANSETRON
  7. ALLOPURINOL. [Concomitant]
     Active Substance: ALLOPURINOL
  8. FAMOTIDINE. [Concomitant]
     Active Substance: FAMOTIDINE
  9. LOSARTAN. [Concomitant]
     Active Substance: LOSARTAN
  10. CYPROHEPTADINE. [Concomitant]
     Active Substance: CYPROHEPTADINE
  11. LABETALOL [Concomitant]
     Active Substance: LABETALOL\LABETALOL HYDROCHLORIDE
  12. TELOTRISTAT ETHYL [Suspect]
     Active Substance: TELOTRISTAT ETHYL
     Indication: CARCINOID SYNDROME
     Route: 048
     Dates: start: 20170425, end: 20170428
  13. NPH INSULIN [Concomitant]
     Active Substance: INSULIN BEEF
  14. INSULIN REGULAR [Concomitant]
     Active Substance: INSULIN NOS

REACTIONS (3)
  - Blood urine present [Unknown]
  - Urinary tract infection [Recovered/Resolved]
  - Nausea [Unknown]

NARRATIVE: CASE EVENT DATE: 201704
